FAERS Safety Report 13642253 (Version 1)
Quarter: 2017Q2

REPORT INFORMATION
  Report Type: Not Available
  Country: RO (occurrence: RO)
  Receive Date: 20170612
  Receipt Date: 20170612
  Transmission Date: 20170830
  Serious: Yes (Death)
  Sender: FDA-Public Use
  Company Number: RO-ANIPHARMA-2017-RO-000008

PATIENT
  Age: 54 Year
  Sex: Female

DRUGS (3)
  1. CLONAZEPAM. [Suspect]
     Active Substance: CLONAZEPAM
     Dosage: 2MG DAILY
  2. VALPROIC ACID (NON-SPECIFIC) [Suspect]
     Active Substance: VALPROIC ACID
     Dosage: 500MG DAILY
  3. OLANZAPINE. [Suspect]
     Active Substance: OLANZAPINE
     Dosage: 15MG DAILY

REACTIONS (2)
  - Neurodegenerative disorder [Unknown]
  - Death [Fatal]

NARRATIVE: CASE EVENT DATE: 2013
